FAERS Safety Report 12408921 (Version 4)
Quarter: 2017Q3

REPORT INFORMATION
  Report Type: Spontaneous
  Country: US (occurrence: US)
  Receive Date: 20160526
  Receipt Date: 20170705
  Transmission Date: 20171127
  Serious: Yes (Other)
  Sender: FDA-Public Use
  Company Number: US-PFIZER INC-2016270286

PATIENT
  Age: 33 Year
  Sex: Female

DRUGS (7)
  1. SERTRALINE HCL [Suspect]
     Active Substance: SERTRALINE HYDROCHLORIDE
     Indication: ANXIETY
     Dosage: UNK
  2. SERTRALINE HCL [Interacting]
     Active Substance: SERTRALINE HYDROCHLORIDE
     Indication: DEPRESSION
  3. TEMAZEPAM. [Interacting]
     Active Substance: TEMAZEPAM
     Indication: DEPRESSION
  4. VENLAFAXINE HCL [Interacting]
     Active Substance: VENLAFAXINE HYDROCHLORIDE
     Dosage: 75 MG, DAILY
  5. VENLAFAXINE HCL [Interacting]
     Active Substance: VENLAFAXINE HYDROCHLORIDE
     Dosage: 150 MG, DAILY
  6. TEMAZEPAM. [Interacting]
     Active Substance: TEMAZEPAM
     Indication: ANXIETY
     Dosage: UNK
  7. QUETIAPINE. [Interacting]
     Active Substance: QUETIAPINE
     Indication: INSOMNIA
     Dosage: UNK

REACTIONS (14)
  - Homicide [Unknown]
  - Panic attack [Recovered/Resolved]
  - Thinking abnormal [Unknown]
  - Physical assault [Unknown]
  - Aggression [Recovered/Resolved]
  - Mood swings [Unknown]
  - Drug ineffective [Unknown]
  - Toxicity to various agents [Unknown]
  - Abnormal behaviour [Recovered/Resolved]
  - Fatigue [Unknown]
  - Akathisia [Recovered/Resolved]
  - Drug interaction [Unknown]
  - Suicidal behaviour [Unknown]
  - Withdrawal syndrome [Recovered/Resolved]
